FAERS Safety Report 8193201-0 (Version None)
Quarter: 2012Q1

REPORT INFORMATION
  Report Type: 
  Country: None (occurrence: None)
  Receive Date: 20120308
  Receipt Date: 20120302
  Transmission Date: 20120608
  Serious: Yes (Life-Threatening, Hospitalization, Other)
  Sender: FDA-Public Use
  Company Number: JP-ASTELLAS-2011JP009492

PATIENT
  Sex: Male

DRUGS (20)
  1. CLINDAMYCIN HCL [Concomitant]
     Indication: LIVER ABSCESS
     Dosage: 600 MG, UNKNOWN/D
     Route: 042
     Dates: start: 20110412, end: 20110502
  2. PREDNISOLONE [Concomitant]
     Indication: RHEUMATOID ARTHRITIS
     Dosage: 10 MG, UNKNOWN/D
     Route: 042
     Dates: start: 20110422
  3. MEROPENEM [Concomitant]
     Indication: SEPTIC SHOCK
  4. NONTHRON KENKETU [Concomitant]
     Indication: DISSEMINATED INTRAVASCULAR COAGULATION
     Dosage: 1500 IU, UNKNOWN/D
     Route: 042
     Dates: start: 20110412, end: 20110414
  5. CLEITON [Concomitant]
     Indication: SEPTIC SHOCK
     Dosage: 300 MG, UNKNOWN/D
     Route: 042
     Dates: start: 20110413, end: 20110421
  6. CLINDAMYCIN HCL [Concomitant]
     Indication: PNEUMONIA BACTERIAL
  7. MEROPENEM [Concomitant]
     Indication: BACTEROIDES INFECTION
  8. CLINDAMYCIN HCL [Concomitant]
     Indication: SEPTIC SHOCK
  9. VANCOMYCIN [Concomitant]
     Indication: LIVER ABSCESS
     Route: 065
  10. NOR-ADRENALIN [Concomitant]
     Indication: SEPTIC SHOCK
     Dosage: UNK
     Route: 042
     Dates: start: 20110412, end: 20110416
  11. CATABON [Concomitant]
     Indication: SEPTIC SHOCK
     Dosage: UNK
     Route: 042
     Dates: start: 20110412, end: 20110416
  12. PROGRAF [Suspect]
     Indication: RHEUMATOID ARTHRITIS
     Dosage: UNK
     Route: 048
  13. CLINDAMYCIN HCL [Concomitant]
     Indication: BACTEROIDES INFECTION
  14. METRONIDAZOLE [Concomitant]
     Indication: BACTEROIDES INFECTION
  15. PREDNISOLONE [Concomitant]
     Indication: RHEUMATOID ARTHRITIS
     Dosage: UNK
     Route: 048
  16. VANCOMYCIN [Concomitant]
     Indication: BACTEROIDES INFECTION
  17. CIMETIDINE HCL [Suspect]
     Dosage: UNK
     Route: 065
  18. MEROPENEM [Concomitant]
     Indication: LIVER ABSCESS
     Dosage: 200 MG, UNKNOWN/D
     Route: 042
     Dates: start: 20110412, end: 20110401
  19. METRONIDAZOLE [Concomitant]
     Indication: LIVER ABSCESS
     Dosage: 2250 MG, UNKNOWN/D
     Route: 042
     Dates: start: 20110412, end: 20110419
  20. ELASPOL [Concomitant]
     Dosage: 300 MG, UNKNOWN/D
     Route: 042
     Dates: start: 20110412, end: 20110419

REACTIONS (7)
  - PNEUMONIA BACTERIAL [None]
  - BACTEROIDES INFECTION [None]
  - SEPTIC SHOCK [None]
  - LIVER ABSCESS [None]
  - HEPATIC FUNCTION ABNORMAL [None]
  - DISSEMINATED INTRAVASCULAR COAGULATION [None]
  - ATRIOVENTRICULAR BLOCK COMPLETE [None]
